FAERS Safety Report 5980163-7 (Version None)
Quarter: 2008Q4

REPORT INFORMATION
  Report Type: 
  Country: None (occurrence: None)
  Receive Date: 20081202
  Receipt Date: 20081202
  Transmission Date: 20090506
  Serious: Yes (Hospitalization)
  Sender: FDA-Public Use
  Company Number: None

PATIENT
  Age: 80 Year
  Sex: Male
  Weight: 105 kg

DRUGS (1)
  1. DASATINIB 70MG BMS CA 180-0097 [Suspect]
     Indication: PROSTATE CANCER
     Dosage: 70MG TWICE DAILY OCCLUSIVE DRESSING
     Route: 046
     Dates: start: 20080923, end: 20081002

REACTIONS (4)
  - BLOOD PRESSURE DECREASED [None]
  - CARDIAC FAILURE CONGESTIVE [None]
  - CONDITION AGGRAVATED [None]
  - PLEURAL EFFUSION [None]
